FAERS Safety Report 5669464-X (Version None)
Quarter: 2008Q1

REPORT INFORMATION
  Report Type: 
  Country: None (occurrence: None)
  Receive Date: 20080317
  Receipt Date: 20080312
  Transmission Date: 20080703
  Serious: Yes (Other)
  Sender: FDA-Public Use
  Company Number: B0512469A

PATIENT
  Age: 75 Year
  Sex: Female

DRUGS (3)
  1. AVANDIA [Suspect]
     Indication: TYPE 2 DIABETES MELLITUS
     Route: 065
  2. DIABETES MEDICATION [Concomitant]
  3. UNKNOWN DRUG [Concomitant]

REACTIONS (2)
  - ANAEMIA [None]
  - CARDIAC HYPERTROPHY [None]
